FAERS Safety Report 21442916 (Version 4)
Quarter: 2023Q1

REPORT INFORMATION
  Report Type: Report from Study
  Country: BR (occurrence: BR)
  Receive Date: 20221012
  Receipt Date: 20230109
  Transmission Date: 20230417
  Serious: Yes (Other)
  Sender: FDA-Public Use
  Company Number: BR-JNJFOC-20221013191

PATIENT
  Age: 15 Year
  Sex: Female
  Weight: 53 kg

DRUGS (2)
  1. INFLIXIMAB [Suspect]
     Active Substance: INFLIXIMAB
     Indication: Product used for unknown indication
     Route: 041
     Dates: start: 20210708
  2. REMICADE [Suspect]
     Active Substance: INFLIXIMAB
     Indication: Crohn^s disease
     Route: 041
     Dates: start: 20210708

REACTIONS (4)
  - Haematochezia [Unknown]
  - Fistula [Unknown]
  - Hidradenitis [Unknown]
  - Drug ineffective [Unknown]
